FAERS Safety Report 7624044 (Version 3)
Quarter: 2014Q1

REPORT INFORMATION
  Report Type: Spontaneous
  Country: US (occurrence: US)
  Receive Date: 20101011
  Receipt Date: 20140225
  Transmission Date: 20141002
  Serious: Yes (Death, Other)
  Sender: FDA-Public Use
  Company Number: US-PURDUE-USA-2010-0048427

PATIENT
  Age: 24 Year
  Sex: Male

DRUGS (1)
  1. OXYCONTIN TABLETS [Suspect]
     Indication: PRODUCT USED FOR UNKNOWN INDICATION

REACTIONS (2)
  - Drug dependence [Unknown]
  - Overdose [Fatal]
